FAERS Safety Report 6722468-8 (Version None)
Quarter: 2010Q2

REPORT INFORMATION
  Report Type: 
  Country: None (occurrence: None)
  Receive Date: 20100512
  Receipt Date: 20100503
  Transmission Date: 20101027
  Serious: Yes (Other)
  Sender: FDA-Public Use
  Company Number: AR-JNJFOC-20100308214

PATIENT
  Sex: Male
  Weight: 15 kg

DRUGS (1)
  1. IBUPIRAC 2% [Suspect]
     Indication: PYREXIA
     Route: 048

REACTIONS (4)
  - ABDOMINAL PAIN UPPER [None]
  - POISONING [None]
  - PRODUCT CONTAMINATION MICROBIAL [None]
  - VOMITING [None]
